FAERS Safety Report 9630527 (Version 2)
Quarter: 2014Q2

REPORT INFORMATION
  Report Type: Report from Study
  Country: US (occurrence: US)
  Receive Date: 20131018
  Receipt Date: 20140507
  Transmission Date: 20141212
  Serious: Yes (Other)
  Sender: FDA-Public Use
  Company Number: US-ROCHE-1288860

PATIENT
  Sex: Female

DRUGS (10)
  1. XELODA [Suspect]
     Indication: RECTAL CANCER METASTATIC
     Route: 065
  2. XELODA [Suspect]
     Indication: COLON CANCER
  3. BEVACIZUMAB [Suspect]
     Indication: RECTAL CANCER METASTATIC
     Route: 065
  4. BEVACIZUMAB [Suspect]
     Indication: COLON CANCER
  5. CITALOPRAM [Concomitant]
     Route: 048
  6. DILTIAZEM [Concomitant]
     Route: 048
  7. GUANFACINE [Concomitant]
     Dosage: NIGHTLY BY MOUTH
     Route: 048
  8. ACETAMINOPHEN/HYDROCODONE [Concomitant]
     Dosage: 10-500 MG AS NEEDED
     Route: 048
  9. PROMETHAZINE [Concomitant]
     Dosage: AS NEEDED
     Route: 048
  10. MORPHINE [Concomitant]
     Dosage: AS NEEDED
     Route: 042

REACTIONS (9)
  - Rectal neoplasm [Unknown]
  - Peripheral coldness [Unknown]
  - Metastases to lymph nodes [Unknown]
  - Rectal cancer metastatic [Unknown]
  - Neoplasm [Unknown]
  - Pelvic mass [Unknown]
  - Liver scan abnormal [Unknown]
  - Hepatic steatosis [Unknown]
  - Microcytic anaemia [Unknown]
